FAERS Safety Report 19734751 (Version 1)
Quarter: 2021Q3

REPORT INFORMATION
  Report Type: Spontaneous
  Country: US (occurrence: US)
  Receive Date: 20210824
  Receipt Date: 20210824
  Transmission Date: 20211014
  Serious: No
  Sender: FDA-Public Use
  Company Number: US-LUPIN PHARMACEUTICALS INC.-2021-15341

PATIENT
  Age: 61 Year
  Sex: Male

DRUGS (4)
  1. FLUOCINONIDE OINTMENT [Suspect]
     Active Substance: FLUOCINONIDE
     Indication: DERMATITIS
     Dosage: UNK
     Route: 061
  2. MOMETASONE [Suspect]
     Active Substance: MOMETASONE
     Indication: DERMATITIS
     Dosage: UNK
     Route: 061
  3. MUPIROCIN. [Concomitant]
     Active Substance: MUPIROCIN
     Indication: TINEA PEDIS
     Dosage: UNK
     Route: 061
  4. KETOCONAZOLE. [Concomitant]
     Active Substance: KETOCONAZOLE
     Indication: TINEA PEDIS
     Dosage: UNK
     Route: 061

REACTIONS (1)
  - Drug ineffective [Unknown]
